FAERS Safety Report 18507276 (Version 4)
Quarter: 2021Q1

REPORT INFORMATION
  Report Type: Spontaneous
  Country: AR (occurrence: AR)
  Receive Date: 20201116
  Receipt Date: 20210305
  Transmission Date: 20210419
  Serious: Yes (Other)
  Sender: FDA-Public Use
  Company Number: AR-PFIZER INC-2020448665

PATIENT
  Age: 72 Year

DRUGS (3)
  1. INLYTA [Suspect]
     Active Substance: AXITINIB
     Indication: RENAL CELL CARCINOMA
     Dosage: 10 MG
     Dates: start: 20200822
  2. INLYTA [Suspect]
     Active Substance: AXITINIB
     Dosage: 6 MG, 2X/DAY (3 TABLETS OF 1 MG IN THE MORNING AND 3 IN THE EVENING)
     Dates: start: 202012
  3. BAVENCIO [Suspect]
     Active Substance: AVELUMAB
     Indication: RENAL CELL CARCINOMA
     Dosage: UNK
     Dates: start: 20200822

REACTIONS (3)
  - Neoplasm progression [Unknown]
  - Hepatitis toxic [Recovered/Resolved]
  - Blood test abnormal [Recovered/Resolved]

NARRATIVE: CASE EVENT DATE: 20201101
